FAERS Safety Report 7659684-7 (Version None)
Quarter: 2011Q3

REPORT INFORMATION
  Report Type: 
  Country: None (occurrence: None)
  Receive Date: 20110805
  Receipt Date: 20110803
  Transmission Date: 20111222
  Serious: Yes (Hospitalization, Other)
  Sender: FDA-Public Use
  Company Number: US-PFIZER INC-2011178030

PATIENT
  Age: 85 Year
  Sex: Male
  Weight: 90.703 kg

DRUGS (5)
  1. COLCHICINE [Interacting]
     Dosage: 0.6 MG, DAILY
     Route: 048
     Dates: start: 20100201
  2. DILTIAZEM [Concomitant]
     Indication: HYPERTENSION
     Dosage: UNK
  3. INSULIN [Concomitant]
     Indication: DIABETES MELLITUS
     Dosage: UNK
  4. COLCHICINE [Interacting]
     Indication: GOUT
     Dosage: 1 MG, DAILY
     Route: 048
     Dates: start: 20101223
  5. LIPITOR [Suspect]
     Indication: BLOOD CHOLESTEROL
     Dosage: 20 MG, DAILY
     Route: 048

REACTIONS (4)
  - OEDEMA PERIPHERAL [None]
  - MYOPATHY [None]
  - OEDEMA DUE TO RENAL DISEASE [None]
  - DRUG INTERACTION [None]
